FAERS Safety Report 6889368-4 (Version None)
Quarter: 2010Q3

REPORT INFORMATION
  Report Type: 
  Country: None (occurrence: None)
  Receive Date: 20100730
  Receipt Date: 20080208
  Transmission Date: 20110219
  Serious: No
  Sender: FDA-Public Use
  Company Number: US-PFIZER INC-2007099915

PATIENT
  Sex: Male
  Weight: 102.27 kg

DRUGS (3)
  1. LIPITOR [Suspect]
     Indication: BLOOD CHOLESTEROL INCREASED
     Route: 048
     Dates: start: 20061201
  2. OPHTHALMOLOGICALS [Concomitant]
  3. CHONDROITIN/GLUCOSAMINE [Concomitant]

REACTIONS (4)
  - CONSTIPATION [None]
  - INSOMNIA [None]
  - MYALGIA [None]
  - NERVOUSNESS [None]
